FAERS Safety Report 8880020 (Version 2)
Quarter: 2012Q4

REPORT INFORMATION
  Report Type: 
  Country: US (occurrence: US)
  Receive Date: 20121031
  Receipt Date: 20121109
  Transmission Date: 20130627
  Serious: Yes (Other)
  Sender: FDA-Public Use
  Company Number: US-VERTEX PHARMACEUTICAL INC.-2012-023716

PATIENT
  Sex: Male
  Weight: 85 kg

DRUGS (10)
  1. INCIVEK [Suspect]
     Indication: HEPATITIS C
     Dosage: 1125 mg,
     Route: 048
     Dates: start: 20120911, end: 20121023
  2. INCIVEK [Suspect]
     Indication: HIV INFECTION
  3. RIBAVIRIN [Suspect]
     Indication: HEPATITIS C
     Dosage: 1000 mg, qd
     Route: 048
     Dates: start: 20120911, end: 20121023
  4. PEGASYS [Suspect]
     Indication: HEPATITIS C
     Dosage: 180 ?g, weekly
     Route: 058
     Dates: start: 20120911, end: 20121023
  5. ATRIPLA [Concomitant]
     Indication: HIV INFECTION
     Dosage: 1 tablet, qd
     Route: 048
  6. BENAZEPRIL [Concomitant]
     Indication: HYPERTENSION
     Dosage: 40 mg, qd
     Route: 048
  7. TRIAMTERENE [Concomitant]
     Indication: FLUID RETENTION
     Dosage: 25 mg, qd
     Route: 048
  8. PRENATAL VITAMINS                  /01549301/ [Concomitant]
     Indication: MEDICAL DIET
     Dosage: 1 tablet, qd
     Route: 048
  9. VITAMIN D /00107901/ [Concomitant]
     Indication: MEDICAL DIET
     Dosage: UNK, qd
     Route: 048
  10. VITAMIN E                          /00110501/ [Concomitant]
     Indication: MEDICAL DIET
     Dosage: UNK, qd
     Route: 048

REACTIONS (3)
  - Blood triglycerides increased [Recovered/Resolved]
  - Blood cholesterol increased [Recovered/Resolved]
  - Off label use [Unknown]
